FAERS Safety Report 8883373 (Version 1)
Quarter: 2012Q4

REPORT INFORMATION
  Report Type: 
  Country: CA (occurrence: CA)
  Receive Date: 20121102
  Receipt Date: 20121102
  Transmission Date: 20130627
  Serious: Yes (Other)
  Sender: FDA-Public Use
  Company Number: CA-PFIZER INC-2012269528

PATIENT
  Age: 81 Year
  Sex: Male

DRUGS (2)
  1. CELEBREX [Suspect]
     Indication: ARTHRITIS
     Dosage: 100 mg, 2x/day
     Route: 048
     Dates: start: 1980
  2. CELEBREX [Suspect]
     Dosage: 100 mg, 2x/day
     Route: 048
     Dates: start: 20021216

REACTIONS (4)
  - Pulmonary embolism [Unknown]
  - Aortic stenosis [Unknown]
  - Urinary retention [Unknown]
  - Atrial fibrillation [Unknown]
